FAERS Safety Report 13746090 (Version 1)
Quarter: 2017Q3

REPORT INFORMATION
  Report Type: Spontaneous
  Country: US (occurrence: US)
  Receive Date: 20170712
  Receipt Date: 20170712
  Transmission Date: 20171127
  Serious: Yes (Other)
  Sender: FDA-Public Use
  Company Number: US-RISING PHARMACEUTICALS, INC.-2017RIS00142

PATIENT
  Age: 62 Year
  Sex: Female
  Weight: 90.7 kg

DRUGS (3)
  1. FLUTICASONE NASAL SPRAY [Suspect]
     Active Substance: FLUTICASONE
     Indication: RHINORRHOEA
     Dosage: 1 DOSAGE UNITS IN EACH NOSTRIL, 2X/DAY
     Route: 045
     Dates: start: 20170613
  2. UNKNOWN PRESCRIPTION MEDICATIONS [Concomitant]
  3. CETIRIZINE HYDROCHLORIDE. [Suspect]
     Active Substance: CETIRIZINE HYDROCHLORIDE
     Indication: RHINORRHOEA
     Dosage: 10 MG, 1X/DAY
     Route: 048
     Dates: start: 20170613, end: 20170622

REACTIONS (2)
  - Drug ineffective [Not Recovered/Not Resolved]
  - Blood pressure increased [Unknown]

NARRATIVE: CASE EVENT DATE: 20170613
